FAERS Safety Report 12854997 (Version 2)
Quarter: 2017Q1

REPORT INFORMATION
  Report Type: Report from Study
  Country: ES (occurrence: ES)
  Receive Date: 20161017
  Receipt Date: 20170104
  Transmission Date: 20170428
  Serious: Yes (Hospitalization)
  Sender: FDA-Public Use
  Company Number: ES-B.I. PHARMACEUTICALS,INC./RIDGEFIELD-2016-BI-46273BI

PATIENT
  Age: 77 Year
  Sex: Male

DRUGS (1)
  1. BLINDED DABIGATRAN [Suspect]
     Active Substance: DABIGATRAN ETEXILATE
     Indication: EMBOLIC STROKE
     Route: 048
     Dates: start: 20150801, end: 20160712

REACTIONS (1)
  - Pancreatitis acute [Recovered/Resolved]

NARRATIVE: CASE EVENT DATE: 20160713
